FAERS Safety Report 5744596-6 (Version None)
Quarter: 2008Q2

REPORT INFORMATION
  Report Type: 
  Country: None (occurrence: None)
  Receive Date: 20080520
  Receipt Date: 20070614
  Transmission Date: 20081010
  Serious: No
  Sender: FDA-Public Use
  Company Number: US-ABBOTT-07P-163-0408916-00

PATIENT
  Sex: Female

DRUGS (1)
  1. TRIAMCINOLONE ACETONIDE [Suspect]
     Indication: PNEUMONIA
     Route: 050
     Dates: start: 20070521, end: 20070523

REACTIONS (2)
  - INSOMNIA [None]
  - PAIN [None]
